FAERS Safety Report 23160321 (Version 2)
Quarter: 2023Q4

REPORT INFORMATION
  Report Type: Report from Study
  Country: CA (occurrence: None)
  Receive Date: 20231108
  Receipt Date: 20231129
  Transmission Date: 20240110
  Serious: Yes (Hospitalization)
  Sender: FDA-Public Use
  Company Number: 2023A090623

PATIENT
  Sex: Male

DRUGS (1)
  1. CALQUENCE [Suspect]
     Active Substance: ACALABRUTINIB
     Indication: Chronic lymphocytic leukaemia
     Route: 048
     Dates: start: 20200402

REACTIONS (6)
  - Poisoning [Unknown]
  - Heart rate increased [Unknown]
  - Hepatic failure [Unknown]
  - Gout [Unknown]
  - Psoriatic arthropathy [Unknown]
  - Lymphadenopathy [Unknown]
